FAERS Safety Report 9248833 (Version 1)
Quarter: 2013Q1

REPORT INFORMATION
  Report Type: Spontaneous
  Country: US (occurrence: None)
  Receive Date: 20121120
  Receipt Date: 20121120
  Transmission Date: 20140127
  Serious: No
  Sender: FDA-Public Use
  Company Number: 1000038567

PATIENT
  Age: 61 Year
  Sex: Female

DRUGS (4)
  1. VIIBRYD [Suspect]
     Indication: DEPRESSION
     Route: 048
     Dates: start: 20120908, end: 20120909
  2. VIIBRYD [Suspect]
     Indication: ANXIETY
     Route: 048
     Dates: start: 20120908, end: 20120909
  3. VIIBRYD [Suspect]
     Indication: DEPRESSION
     Route: 048
     Dates: start: 20120910
  4. VIIBRYD [Suspect]
     Indication: ANXIETY
     Route: 048
     Dates: start: 20120910

REACTIONS (3)
  - Drug effect increased [None]
  - Unevaluable event [None]
  - Dyspepsia [None]
